FAERS Safety Report 7573514-3 (Version None)
Quarter: 2011Q2

REPORT INFORMATION
  Report Type: 
  Country: None (occurrence: None)
  Receive Date: 20110621
  Receipt Date: 20110602
  Transmission Date: 20111010
  Serious: Yes (Hospitalization)
  Sender: FDA-Public Use
  Company Number: 20110448

PATIENT
  Age: 4 Year
  Sex: Male

DRUGS (2)
  1. DEXAMETHASONE [Suspect]
     Indication: EPENDYMOMA MALIGNANT
     Dosage: 1 MG TWICE DAILY ORAL
     Route: 048
  2. DEXAMETHASON SODIUM PHOSPHATE INJECTION, USP [Suspect]
     Indication: EPENDYMOMA MALIGNANT
     Dosage: POSTOP 4 MG EVERY 6

REACTIONS (4)
  - POSTERIOR REVERSIBLE ENCEPHALOPATHY SYNDROME [None]
  - HYPERTENSION [None]
  - CONVULSION [None]
  - MENTAL STATUS CHANGES [None]
